FAERS Safety Report 4984147-7 (Version None)
Quarter: 2006Q2

REPORT INFORMATION
  Report Type: 
  Country: None (occurrence: None)
  Receive Date: 20060425
  Receipt Date: 20060425
  Transmission Date: 20061013
  Serious: Yes (Hospitalization)
  Sender: FDA-Public Use
  Company Number: None

PATIENT
  Age: 69 Year
  Sex: Male

DRUGS (3)
  1. METOPROLOL TARTRATE [Suspect]
     Dosage: 25 MG PO Q12HR
     Route: 048
  2. POTASSIUM CHLORIDE [Suspect]
     Dosage: 80 MEQ TID
  3. SPIRONOLACTONE [Suspect]
     Dosage: 25 MG PO QD
     Route: 048

REACTIONS (2)
  - BRADYCARDIA [None]
  - HYPERKALAEMIA [None]
